FAERS Safety Report 4741500-4 (Version None)
Quarter: 2005Q3

REPORT INFORMATION
  Report Type: 
  Country: None (occurrence: None)
  Receive Date: 20050808
  Receipt Date: 20050725
  Transmission Date: 20060218
  Serious: Yes (Death)
  Sender: FDA-Public Use
  Company Number: WAES 0507USA01897

PATIENT
  Age: 83 Year
  Sex: Male

DRUGS (3)
  1. COZAAR [Suspect]
     Indication: HYPERTENSION
     Dosage: 25 MG DAILY; PO
     Route: 048
     Dates: start: 20020215, end: 20050301
  2. FUROSEMIDE [Concomitant]
  3. GLICLAZIDE [Concomitant]

REACTIONS (3)
  - BLOOD CREATININE INCREASED [None]
  - FALL [None]
  - OEDEMA [None]
